FAERS Safety Report 6407578 (Version 8)
Quarter: 2015Q2

REPORT INFORMATION
  Report Type: Spontaneous
  Country: US (occurrence: US)
  Receive Date: 20070906
  Receipt Date: 20150609
  Transmission Date: 20150821
  Serious: Yes (Hospitalization, Other)
  Sender: FDA-Public Use
  Company Number: US-ELI_LILLY_AND_COMPANY-US200604002386

PATIENT
  Sex: Female

DRUGS (8)
  1. ZYPREXA [Suspect]
     Active Substance: OLANZAPINE
     Dosage: 2.5 MG, QD
  2. ANTIHYPERTENSIVES [Concomitant]
     Active Substance: UNSPECIFIED INGREDIENT
     Indication: HYPERTENSION
  3. ZYPREXA [Suspect]
     Active Substance: OLANZAPINE
     Dosage: UNK, UNKNOWN
  4. LITHIUM. [Concomitant]
     Active Substance: LITHIUM
     Indication: BIPOLAR DISORDER
     Dates: end: 19991211
  5. CADUET [Concomitant]
     Active Substance: AMLODIPINE BESYLATE\ATORVASTATIN CALCIUM
     Indication: BLOOD PRESSURE ABNORMAL
     Dosage: 10 MG, QD
     Route: 048
     Dates: start: 20110730
  6. ZYPREXA [Suspect]
     Active Substance: OLANZAPINE
     Indication: BIPOLAR DISORDER
     Dosage: 15 MG, QD
     Route: 048
     Dates: start: 199911, end: 2001
  7. ZYPREXA [Suspect]
     Active Substance: OLANZAPINE
     Indication: SCHIZOPHRENIA
     Dosage: 20 MG, QD
  8. ZYPREXA INTRAMUSCULAR [Suspect]
     Active Substance: OLANZAPINE
     Indication: UNDERWEIGHT
     Dosage: 20 MG, QD
     Route: 030
     Dates: start: 2000, end: 2000

REACTIONS (24)
  - General physical health deterioration [Unknown]
  - Visual impairment [Recovered/Resolved]
  - Asthenia [Unknown]
  - Blood pressure increased [Unknown]
  - Pain [Unknown]
  - Pancreatitis [Recovered/Resolved]
  - Weight increased [Recovered/Resolved]
  - Toxicity to various agents [Recovered/Resolved]
  - Gait disturbance [Unknown]
  - Hypothyroidism [Unknown]
  - Vomiting [Recovered/Resolved]
  - Renal failure [Recovered/Resolved]
  - Blindness [Recovered/Resolved]
  - Dizziness [Recovered/Resolved]
  - Off label use [Unknown]
  - Gastric ulcer helicobacter [Recovered/Resolved]
  - General physical condition abnormal [Unknown]
  - Pneumonia [Recovered/Resolved]
  - Amenorrhoea [Recovered/Resolved]
  - Diabetes mellitus [Unknown]
  - Brain injury [Unknown]
  - Ascites [Recovered/Resolved]
  - Somnolence [Recovered/Resolved]
  - Dry mouth [Not Recovered/Not Resolved]

NARRATIVE: CASE EVENT DATE: 2000
